FAERS Safety Report 14690425 (Version 3)
Quarter: 2019Q3

REPORT INFORMATION
  Report Type: Report from Study
  Country: DE (occurrence: DE)
  Receive Date: 20180328
  Receipt Date: 20190801
  Transmission Date: 20191004
  Serious: Yes (Hospitalization, Other)
  Sender: FDA-Public Use
  Company Number: DE-MYLANLABS-2018M1018170

PATIENT
  Age: 77 Year
  Sex: Male
  Weight: 95 kg

DRUGS (52)
  1. BEVACIZUMAB. [Suspect]
     Active Substance: BEVACIZUMAB
     Dosage: 645 MG, 3XW
     Route: 042
     Dates: start: 20161104
  2. CIPROFLOXACIN. [Concomitant]
     Active Substance: CIPROFLOXACIN
     Indication: PRODUCT USED FOR UNKNOWN INDICATION
     Dosage: 500 MG, QD
     Route: 048
     Dates: start: 20170512, end: 20170516
  3. METAMIZOL                          /06276701/ [Concomitant]
     Active Substance: METAMIZOLE
     Indication: GROIN PAIN
     Dosage: 30 GTT, UNK
     Route: 048
     Dates: start: 20151123
  4. MARCUMAR [Concomitant]
     Active Substance: PHENPROCOUMON
     Dosage: ACCORDING TO QUICK VALUE
     Route: 048
  5. PHENPROCOUMON [Concomitant]
     Active Substance: PHENPROCOUMON
     Indication: ATRIAL FIBRILLATION
     Dosage: ACCORDING TO QUICK VALUE
     Route: 048
  6. CAPECITABINE. [Suspect]
     Active Substance: CAPECITABINE
     Dosage: 4300 MILLIGRAM, Q3W
     Route: 048
     Dates: start: 20160108
  7. BEVACIZUMAB. [Suspect]
     Active Substance: BEVACIZUMAB
     Dosage: 645 MILLIGRAM, Q3W
     Route: 042
     Dates: start: 20160812
  8. CEFPODOXIME [Suspect]
     Active Substance: CEFPODOXIME
     Dosage: 4300 MILLIGRAM, QD
     Route: 048
     Dates: start: 20151127, end: 20160512
  9. BETAISODONA [Concomitant]
     Active Substance: POVIDONE-IODINE
     Indication: NAIL BED INFLAMMATION
     Dosage: 3, QD
     Route: 065
     Dates: start: 20161223, end: 20170113
  10. CAPECITABINE. [Suspect]
     Active Substance: CAPECITABINE
     Dosage: 4000 MILLIGRAM, Q3W
     Route: 048
     Dates: start: 20160902
  11. BEVACIZUMAB. [Suspect]
     Active Substance: BEVACIZUMAB
     Indication: COLORECTAL CANCER
     Dosage: 712.5 MILLIGRAM, Q3W
     Route: 042
     Dates: start: 20151218
  12. BEVACIZUMAB. [Suspect]
     Active Substance: BEVACIZUMAB
     Dosage: 712.5 MILLIGRAM, Q3W
     Route: 042
     Dates: start: 20160108
  13. CEFPODOXIME [Suspect]
     Active Substance: CEFPODOXIME
     Indication: COLORECTAL CANCER
     Dosage: 400 MG, QD
     Route: 048
     Dates: start: 20170602, end: 20170612
  14. DEXAMETHASONE. [Concomitant]
     Active Substance: DEXAMETHASONE
     Indication: INFECTION
     Dosage: 8 MG, CYCLE
     Route: 042
     Dates: start: 20161128, end: 20170804
  15. NOVALGIN                           /00169801/ [Concomitant]
     Active Substance: ACETAMINOPHEN\CAFFEINE\PROPYPHENAZONE
     Indication: PRODUCT USED FOR UNKNOWN INDICATION
     Dosage: 1500 MG, QD
     Route: 048
     Dates: start: 20160606
  16. NOVALGIN                           /00169801/ [Concomitant]
     Active Substance: ACETAMINOPHEN\CAFFEINE\PROPYPHENAZONE
     Dosage: 500 MG, QD
     Route: 048
     Dates: start: 20160606
  17. LINEZOLID. [Concomitant]
     Active Substance: LINEZOLID
     Indication: PRODUCT USED FOR UNKNOWN INDICATION
     Dosage: 1200 MG, QD
     Route: 048
     Dates: start: 20170331, end: 20170409
  18. BEVACIZUMAB. [Suspect]
     Active Substance: BEVACIZUMAB
     Dosage: 712.5 MILLIGRAM, Q3W
     Route: 042
     Dates: start: 20160318
  19. OPIUM                              /00036301/ [Concomitant]
     Active Substance: OPIUM
     Indication: PRODUCT USED FOR UNKNOWN INDICATION
     Dosage: UNK
     Route: 048
     Dates: start: 20161223
  20. VOLTAREN [Concomitant]
     Active Substance: DICLOFENAC SODIUM
     Indication: OEDEMA PERIPHERAL
     Dosage: UNK
     Route: 061
     Dates: start: 20160318
  21. VOLTAREN [Concomitant]
     Active Substance: DICLOFENAC SODIUM
     Indication: PAIN
  22. NOVALGIN                           /00169801/ [Concomitant]
     Active Substance: ACETAMINOPHEN\CAFFEINE\PROPYPHENAZONE
     Dosage: 1500 MG, QD
     Route: 048
     Dates: start: 20160318
  23. IBUPROFEN. [Concomitant]
     Active Substance: IBUPROFEN
     Indication: PRODUCT USED FOR UNKNOWN INDICATION
     Dosage: 600 MG, PRN
     Route: 048
     Dates: start: 20160226
  24. PANTOPRAZOL                        /01263201/ [Concomitant]
     Active Substance: PANTOPRAZOLE
     Indication: PRODUCT USED FOR UNKNOWN INDICATION
     Dosage: 40 MG, QD
     Route: 048
     Dates: start: 20151123
  25. IRINOTECAN [Concomitant]
     Active Substance: IRINOTECAN
     Indication: COLORECTAL CANCER
     Dosage: 200 MILLIGRAM, Q3W
     Route: 042
     Dates: start: 20161128, end: 20170714
  26. CAPECITABINE. [Suspect]
     Active Substance: CAPECITABINE
     Dosage: 4300 MILLIGRAM, Q3W
     Route: 048
     Dates: start: 20151127, end: 20160512
  27. CAPECITABINE. [Suspect]
     Active Substance: CAPECITABINE
     Dosage: 4300 MILLIGRAM, Q3W
     Route: 048
     Dates: start: 20151218
  28. BEVACIZUMAB. [Suspect]
     Active Substance: BEVACIZUMAB
     Indication: COLORECTAL CANCER METASTATIC
     Dosage: 712.5 MILLIGRAM, Q3W
     Route: 042
     Dates: start: 20151127
  29. BEVACIZUMAB. [Suspect]
     Active Substance: BEVACIZUMAB
     Dosage: 600 MG, 3XW
     Route: 042
     Dates: start: 20160203
  30. BISOPROLOL [Concomitant]
     Active Substance: BISOPROLOL
     Indication: HYPERTENSION
     Dosage: 10 MG, QD
     Route: 048
     Dates: start: 2001
  31. VITAMIN B6 [Concomitant]
     Active Substance: PYRIDOXINE HYDROCHLORIDE
     Indication: PRODUCT USED FOR UNKNOWN INDICATION
     Dosage: 1 DF, QD
     Route: 048
     Dates: start: 20161014
  32. VERGENTAN [Concomitant]
     Active Substance: ALIZAPRIDE HYDROCHLORIDE
     Indication: NAUSEA
     Dosage: 150 MG, QD
     Route: 048
     Dates: start: 20151128
  33. MACROGOL [Concomitant]
     Active Substance: POLYETHYLENE GLYCOLS
     Indication: CONSTIPATION
     Dosage: 3 DOSAGE FORM, QD
     Route: 048
     Dates: start: 20160426
  34. BEVACIZUMAB. [Suspect]
     Active Substance: BEVACIZUMAB
     Dosage: 712.5 MILLIGRAM, Q3W
     Route: 042
     Dates: start: 20160129
  35. BEVACIZUMAB. [Suspect]
     Active Substance: BEVACIZUMAB
     Dosage: 645 MILLIGRAM, Q3W
     Route: 042
     Dates: start: 20161014
  36. VOLTAREN [Concomitant]
     Active Substance: DICLOFENAC SODIUM
     Indication: PAIN IN EXTREMITY
  37. NITRENDIPIN [Concomitant]
     Active Substance: NITRENDIPINE
     Indication: HYPERTENSION
     Dosage: 20 MG, QD
     Route: 048
     Dates: start: 2007
  38. ATROPIN                            /00002801/ [Concomitant]
     Active Substance: ATROPINE
     Indication: CHOLINERGIC SYNDROME
     Dosage: 0.25 MG, CYCLE, PRIOR TO CHEMOTHERAPY WITH IRINOTECAN
     Route: 058
     Dates: start: 20161128, end: 20170804
  39. PHENPROCOUMON [Concomitant]
     Active Substance: PHENPROCOUMON
     Indication: ATRIAL FIBRILLATION
     Dosage: DEPENDING ON QUICK VALUE
     Route: 058
     Dates: start: 20151218, end: 20160922
  40. CAPECITABINE. [Suspect]
     Active Substance: CAPECITABINE
     Indication: COLORECTAL CANCER
     Dosage: 2000 MILLIGRAM, Q3W
     Route: 048
     Dates: start: 20170224, end: 20170525
  41. CAPECITABINE. [Suspect]
     Active Substance: CAPECITABINE
     Dosage: 3000 MILLIGRAM, Q3W
     Route: 048
     Dates: start: 20161104, end: 20170727
  42. BEVACIZUMAB. [Suspect]
     Active Substance: BEVACIZUMAB
     Dosage: 600 MILLIGRAM, Q3W
     Route: 042
     Dates: start: 20161223
  43. MARCUMAR [Concomitant]
     Active Substance: PHENPROCOUMON
     Indication: ATRIAL FIBRILLATION
     Dosage: UNK
     Route: 058
     Dates: start: 20151218, end: 20160922
  44. FORTIMEL [Concomitant]
     Active Substance: DIETARY SUPPLEMENT
     Indication: WEIGHT DECREASED
     Dosage: UNK, PRN
     Route: 048
     Dates: start: 20160923
  45. HCTZ [Concomitant]
     Active Substance: HYDROCHLOROTHIAZIDE
     Indication: HYPERTENSION
     Dosage: 25 MG, QD
     Route: 048
     Dates: start: 20150909
  46. CAPECITABINE. [Suspect]
     Active Substance: CAPECITABINE
     Dosage: 2500 MILLIGRAM, Q3W
     Route: 048
     Dates: start: 20161223, end: 20170105
  47. CAPECITABINE. [Suspect]
     Active Substance: CAPECITABINE
     Dosage: 3000 MILLIGRAM, Q3W
     Route: 048
     Dates: start: 20161014, end: 20161117
  48. GRANISETRON [Concomitant]
     Active Substance: GRANISETRON
     Indication: NAUSEA
     Dosage: 1 MG, QD,  DAY 1 OF CHEMOTHERAPY
     Route: 042
     Dates: start: 20161128, end: 20170804
  49. VITAMIN B1 [Concomitant]
     Active Substance: THIAMINE HYDROCHLORIDE
     Indication: PRODUCT USED FOR UNKNOWN INDICATION
     Dosage: 200 MG, UNK
     Route: 048
     Dates: start: 20170123
  50. DEXAMETHASONE. [Concomitant]
     Active Substance: DEXAMETHASONE
     Dosage: DAY 1 AND 2 OF CHEMOTHERAPY
     Route: 048
     Dates: start: 20161128, end: 20170805
  51. VITAMIN B6 [Concomitant]
     Active Substance: PYRIDOXINE HYDROCHLORIDE
     Dosage: 100 MILLIGRAM, QD
     Route: 048
     Dates: start: 20161014
  52. TORASEMID [Concomitant]
     Active Substance: TORSEMIDE
     Indication: CARDIAC FAILURE
     Dosage: 5 MG, QD
     Route: 048
     Dates: start: 20150909

REACTIONS (30)
  - Proteinuria [Not Recovered/Not Resolved]
  - Weight decreased [Not Recovered/Not Resolved]
  - Condition aggravated [Unknown]
  - Dyspnoea [Recovered/Resolved]
  - Decreased appetite [Recovered/Resolved]
  - Skin ulcer [Not Recovered/Not Resolved]
  - Nausea [Not Recovered/Not Resolved]
  - Prothrombin time prolonged [Recovered/Resolved]
  - Flank pain [Recovered/Resolved]
  - Insomnia [Recovered/Resolved]
  - Visual impairment [Unknown]
  - Cystitis [Not Recovered/Not Resolved]
  - Constipation [Recovered/Resolved]
  - Nail bed inflammation [Unknown]
  - Palmar-plantar erythrodysaesthesia syndrome [Recovered/Resolved]
  - Taste disorder [Recovered/Resolved]
  - Alopecia [Not Recovered/Not Resolved]
  - Oedema peripheral [Not Recovered/Not Resolved]
  - Blood uric acid increased [Recovered/Resolved]
  - Dry mouth [Not Recovered/Not Resolved]
  - Diarrhoea [Recovered/Resolved]
  - Polyneuropathy [Not Recovered/Not Resolved]
  - Prostatitis [Recovered/Resolved]
  - Incisional hernia [Unknown]
  - Sinus tachycardia [Recovered/Resolved]
  - Blood bilirubin increased [Not Recovered/Not Resolved]
  - Gamma-glutamyltransferase increased [Not Recovered/Not Resolved]
  - Mucosal inflammation [Recovered/Resolved]
  - Fatigue [Not Recovered/Not Resolved]
  - Jaundice [Unknown]

NARRATIVE: CASE EVENT DATE: 20151127
